FAERS Safety Report 23374635 (Version 1)
Quarter: 2024Q1

REPORT INFORMATION
  Report Type: Report from Study
  Country: CO (occurrence: CO)
  Receive Date: 20240105
  Receipt Date: 20240105
  Transmission Date: 20240410
  Serious: Yes (Death, Hospitalization, Other)
  Sender: FDA-Public Use
  Company Number: CO-ABBVIE-5571797

PATIENT
  Age: 70 Year
  Sex: Female
  Weight: 58 kg

DRUGS (1)
  1. ZEMPLAR [Suspect]
     Active Substance: PARICALCITOL
     Indication: Chronic kidney disease
     Dosage: FORM STRENGTH: 2 MICROGRAM
     Route: 048
     Dates: start: 20180619, end: 20231206

REACTIONS (10)
  - Blood glucose abnormal [Fatal]
  - Hypotension [Not Recovered/Not Resolved]
  - Seizure [Unknown]
  - Heart rate abnormal [Fatal]
  - Blood pressure abnormal [Fatal]
  - Loss of consciousness [Unknown]
  - Pulmonary oedema [Not Recovered/Not Resolved]
  - Oxygen saturation abnormal [Fatal]
  - Pleural effusion [Unknown]
  - Pneumonia [Unknown]

NARRATIVE: CASE EVENT DATE: 20231226
